FAERS Safety Report 4583799-3 (Version None)
Quarter: 2005Q1

REPORT INFORMATION
  Report Type: 
  Country: None (occurrence: None)
  Receive Date: 20050216
  Receipt Date: 20050127
  Transmission Date: 20050727
  Serious: No
  Sender: FDA-Public Use
  Company Number: US-GLAXOSMITHKLINE-A0542893A

PATIENT
  Sex: Female

DRUGS (1)
  1. LOTRONEX [Suspect]
     Indication: ILL-DEFINED DISORDER
     Dosage: 1MG TWICE PER DAY
     Route: 048

REACTIONS (1)
  - MENSTRUAL DISORDER [None]
